FAERS Safety Report 14427453 (Version 2)
Quarter: 2018Q2

REPORT INFORMATION
  Report Type: Spontaneous
  Country: US (occurrence: US)
  Receive Date: 20180123
  Receipt Date: 20180620
  Transmission Date: 20180711
  Serious: Yes (Hospitalization, Other)
  Sender: FDA-Public Use
  Company Number: US-IMPAX LABORATORIES, INC-2017-IPXL-03666

PATIENT
  Age: 81 Year
  Sex: Male
  Weight: 68 kg

DRUGS (4)
  1. AMLODIPINE [Concomitant]
     Active Substance: AMLODIPINE BESYLATE
     Indication: BLOOD PRESSURE ABNORMAL
     Dosage: UNK
     Route: 065
  2. EXELON PATCH [Concomitant]
     Active Substance: RIVASTIGMINE
     Indication: PARKINSON^S DISEASE
     Dosage: UNK
     Route: 065
  3. RYTARY [Suspect]
     Active Substance: CARBIDOPA\LEVODOPA
     Indication: PARKINSON^S DISEASE
     Dosage: 36.25/145MG, TWO CAPSULE, 4 TIMES DAILY
     Route: 048
     Dates: start: 2015
  4. ASPIRIN. [Concomitant]
     Active Substance: ASPIRIN
     Indication: PROPHYLAXIS
     Dosage: 81 MG, UNK
     Route: 065

REACTIONS (7)
  - Influenza [Unknown]
  - Agitation [Not Recovered/Not Resolved]
  - Communication disorder [Unknown]
  - Gangrene [Unknown]
  - Cellulitis [Unknown]
  - Hernia [Unknown]
  - Pneumonia [Unknown]

NARRATIVE: CASE EVENT DATE: 201710
